FAERS Safety Report 8932639 (Version 1)
Quarter: 2012Q4

REPORT INFORMATION
  Report Type: Spontaneous
  Country: US (occurrence: None)
  Receive Date: 20121126
  Receipt Date: 20121126
  Transmission Date: 20130627
  Serious: Yes (Life-Threatening, Other)
  Sender: FDA-Public Use
  Company Number: None

PATIENT
  Age: 53 Year
  Sex: Female
  Weight: 70.5 kg

DRUGS (1)
  1. HOMEOPATHIC LYMPHATIC CLEAR FORMULA 300MG BOTANIC CHOICE [Suspect]
     Dosage: 2 TABLETS 3 times daily

REACTIONS (1)
  - No adverse event [None]
